FAERS Safety Report 10173015 (Version 3)
Quarter: 2014Q4

REPORT INFORMATION
  Report Type: Report from Study
  Country: CN (occurrence: CN)
  Receive Date: 20140515
  Receipt Date: 20141017
  Transmission Date: 20150528
  Serious: Yes (Death, Hospitalization)
  Sender: FDA-Public Use
  Company Number: PHHY2014CN057713

PATIENT
  Age: 3 Year
  Sex: Female

DRUGS (1)
  1. EXJADE [Suspect]
     Active Substance: DEFERASIROX
     Indication: THALASSAEMIA
     Dosage: 250 MG, QD
     Route: 048
     Dates: start: 20131018

REACTIONS (3)
  - Death [Fatal]
  - Anaemia [Unknown]
  - Bronchitis [Unknown]

NARRATIVE: CASE EVENT DATE: 20140513
